FAERS Safety Report 16241424 (Version 1)
Quarter: 2019Q2

REPORT INFORMATION
  Report Type: Spontaneous
  Country: PT (occurrence: PT)
  Receive Date: 20190426
  Receipt Date: 20190426
  Transmission Date: 20190711
  Serious: Yes (Hospitalization, Other)
  Sender: FDA-Public Use
  Company Number: PT-AUROBINDO-AUR-APL-2019-022711

PATIENT

DRUGS (1)
  1. PIPERACILLIN AND TAZOBACTAM [Suspect]
     Active Substance: PIPERACILLIN SODIUM\TAZOBACTAM SODIUM
     Indication: PROSTATIC ABSCESS
     Dosage: UNK
     Route: 065

REACTIONS (6)
  - Escherichia infection [Unknown]
  - Product use in unapproved indication [Unknown]
  - Hypotension [Unknown]
  - Anuria [Unknown]
  - Urine output decreased [Unknown]
  - Septic shock [Unknown]
